FAERS Safety Report 5375700-X (Version None)
Quarter: 2007Q2

REPORT INFORMATION
  Report Type: 
  Country: None (occurrence: None)
  Receive Date: 20070627
  Receipt Date: 20070622
  Transmission Date: 20071010
  Serious: Yes (Disabling)
  Sender: FDA-Public Use
  Company Number: 167-C5013-07061259

PATIENT
  Age: 59 Year
  Sex: Male

DRUGS (2)
  1. CC-5013 (LENALIDOMIDE) (CAPSULES) [Suspect]
     Indication: MULTIPLE MYELOMA
     Dosage: 25 MG, DAYS 1-21, ORAL
     Route: 048
     Dates: start: 20070308
  2. DEXAMETHASONE TAB [Suspect]
     Indication: MULTIPLE MYELOMA
     Dosage: 40 MG, DAYS 1-4, ORAL
     Route: 048
     Dates: start: 20070308

REACTIONS (2)
  - IMPAIRED HEALING [None]
  - OSTEONECROSIS [None]
